FAERS Safety Report 4599965-7 (Version None)
Quarter: 2005Q1

REPORT INFORMATION
  Report Type: 
  Country: None (occurrence: None)
  Receive Date: 20050303
  Receipt Date: 20050216
  Transmission Date: 20050727
  Serious: Yes (Hospitalization)
  Sender: FDA-Public Use
  Company Number: 2005-0008054

PATIENT
  Age: 29 Year
  Sex: Female
  Weight: 42 kg

DRUGS (4)
  1. EMTRICITABINE (EMTRICITABINE) [Suspect]
     Indication: HIV INFECTION
     Dates: start: 20050114
  2. TENOFOVIR DISOPROXIL FUMARATE (TENOFOVIR DISOPROXIL FUMARATE) [Suspect]
     Indication: HIV INFECTION
     Dates: start: 20050114
  3. SAQUINAVIR (SAQUINAVIR) [Suspect]
     Indication: HIV INFECTION
     Dates: start: 20050114
  4. RITONAVIR (RITONAVIR) [Suspect]
     Indication: HIV INFECTION
     Dates: start: 20050114

REACTIONS (1)
  - GASTROENTERITIS [None]
